FAERS Safety Report 7944737-6 (Version None)
Quarter: 2011Q4

REPORT INFORMATION
  Report Type: 
  Country: None (occurrence: None)
  Receive Date: 20111114
  Receipt Date: 20110908
  Transmission Date: 20120403
  Serious: No
  Sender: FDA-Public Use
  Company Number: 1000023690

PATIENT
  Age: 71 Year
  Sex: Male

DRUGS (17)
  1. FINASTERIDE (FINASTERIDE) (FINASTERIDE) [Concomitant]
  2. B-12 (CYANOCOBALAMIN) (INJECTION) (CYANOCOBALAMIN) [Concomitant]
  3. SAVELLA [Suspect]
     Indication: FIBROMYALGIA
     Dosage: 100 MG (50 MG, 2 IN 1 D), ORAL; 50 MG (25 MG, 2 IN 1 D), ORAL
     Route: 048
     Dates: start: 20110101, end: 20110828
  4. SPIRIVA (TIOTROPIUM BROMIDE) (TIOTROPIUM BROMIDE) [Concomitant]
  5. FLAXSEED OIL (LINUM USITATISSIMUM SEED OIL)  (LINUM USITATISSIMUM SEED [Concomitant]
  6. CALCIUM (CALCIUM) (CALCIUM) [Concomitant]
  7. LISINOPRIL [Concomitant]
  8. SIMVASTATIN [Concomitant]
  9. CO-ENZYME Q12 (UBIDECARENONE)  (UBIDECARENONE) [Concomitant]
  10. MSM (METHYLSULFONYLMETHAN) (METHYLSULFONYLMETHAN) [Concomitant]
  11. OSTEO BI-FLEX (OSTEO BI-FLEX) (OSTEO BI-FLEX) [Concomitant]
  12. ANDROGEL (TESTOSTERONE) (TESTOSTERONE) [Concomitant]
  13. SAVELLA [Suspect]
     Indication: FIBROMYALGIA
     Dosage: 12.5 MG (12.5 MG, 1 IN 1 D), ORAL; 25 MG (12.5 MG, 2 IN 1 D), ORAL; 50 MG (25 MG, 2 IN 1 D), ORAL
     Route: 048
     Dates: start: 20110601, end: 20110101
  14. SAVELLA [Suspect]
     Indication: FIBROMYALGIA
     Dosage: 12.5 MG (12.5 MG, 1 IN 1 D), ORAL; 25 MG (12.5 MG, 2 IN 1 D), ORAL; 50 MG (25 MG, 2 IN 1 D), ORAL
     Route: 048
     Dates: start: 20110101, end: 20110101
  15. FISH OIL (FISH OIL) (FISH OIL) [Concomitant]
  16. ASPIRIN [Concomitant]
  17. MVI (MIV) (MVI) [Concomitant]

REACTIONS (5)
  - DYSPNOEA [None]
  - HEART RATE INCREASED [None]
  - CONSTIPATION [None]
  - HYPERHIDROSIS [None]
  - BLOOD PRESSURE INCREASED [None]
